FAERS Safety Report 7590052-2 (Version None)
Quarter: 2011Q3

REPORT INFORMATION
  Report Type: 
  Country: None (occurrence: None)
  Receive Date: 20110705
  Receipt Date: 20110628
  Transmission Date: 20111222
  Serious: Yes (Hospitalization)
  Sender: FDA-Public Use
  Company Number: A0934800A

PATIENT
  Sex: Female

DRUGS (1)
  1. COREG CR [Suspect]
     Dosage: 80MG UNKNOWN
     Route: 065
     Dates: start: 20090424

REACTIONS (1)
  - ADVERSE EVENT [None]
